FAERS Safety Report 22168335 (Version 1)
Quarter: 2023Q2

REPORT INFORMATION
  Report Type: Spontaneous
  Country: US (occurrence: None)
  Receive Date: 20230403
  Receipt Date: 20230403
  Transmission Date: 20230722
  Serious: Yes (Hospitalization)
  Sender: FDA-Public Use
  Company Number: None

PATIENT
  Age: 84 Year
  Sex: Female
  Weight: 58 kg

DRUGS (1)
  1. ATEZOLIZUMAB [Suspect]
     Active Substance: ATEZOLIZUMAB
     Dates: start: 20230310, end: 20230331

REACTIONS (11)
  - Diarrhoea [None]
  - Nausea [None]
  - Asthenia [None]
  - Disorientation [None]
  - Hypovolaemia [None]
  - Dehydration [None]
  - Gait inability [None]
  - Tachycardia [None]
  - Blood pressure increased [None]
  - Hyponatraemia [None]
  - Clostridium difficile infection [None]

NARRATIVE: CASE EVENT DATE: 20230402
